FAERS Safety Report 15263566 (Version 4)
Quarter: 2025Q1

REPORT INFORMATION
  Report Type: Report from Study
  Country: US (occurrence: US)
  Receive Date: 20180810
  Receipt Date: 20250329
  Transmission Date: 20250409
  Serious: Yes (Other)
  Sender: ROCHE
  Company Number: US-ROCHE-2128519

PATIENT
  Age: 33 Year
  Sex: Male

DRUGS (1)
  1. HEMLIBRA [Suspect]
     Active Substance: EMICIZUMAB-KXWH
     Indication: Haemophilia A with anti factor VIII
     Route: 065

REACTIONS (4)
  - Haemorrhage [Unknown]
  - Arthropathy [Recovering/Resolving]
  - Bone development abnormal [Recovering/Resolving]
  - Intermenstrual bleeding [Unknown]
